FAERS Safety Report 6122840-3 (Version None)
Quarter: 2009Q1

REPORT INFORMATION
  Report Type: 
  Country: None (occurrence: None)
  Receive Date: 20090318
  Receipt Date: 20090311
  Transmission Date: 20090719
  Serious: Yes (Death)
  Sender: FDA-Public Use
  Company Number: A0772533A

PATIENT
  Age: 30 Year
  Sex: Male

DRUGS (3)
  1. TYKERB [Suspect]
     Indication: GLIOSARCOMA
     Route: 065
     Dates: start: 20090201
  2. SODIUM PHENYLBUTYRATE [Concomitant]
  3. OTHER MEDICATIONS [Concomitant]

REACTIONS (1)
  - DEATH [None]
